FAERS Safety Report 18933404 (Version 3)
Quarter: 2023Q2

REPORT INFORMATION
  Report Type: Spontaneous
  Country: US (occurrence: US)
  Receive Date: 20210224
  Receipt Date: 20230419
  Transmission Date: 20230721
  Serious: Yes (Other)
  Sender: FDA-Public Use
  Company Number: US-GILEAD-2021-0517979

PATIENT
  Age: 50 Year
  Sex: Female
  Weight: 90.249 kg

DRUGS (19)
  1. VIREAD [Suspect]
     Active Substance: TENOFOVIR DISOPROXIL FUMARATE
     Indication: HIV infection
     Dosage: UNK
     Route: 048
     Dates: start: 2003
  2. VIREAD [Suspect]
     Active Substance: TENOFOVIR DISOPROXIL FUMARATE
     Dosage: UNK
     Route: 048
     Dates: start: 200205, end: 200408
  3. ATRIPLA [Suspect]
     Active Substance: EFAVIRENZ\EMTRICITABINE\TENOFOVIR DISOPROXIL FUMARATE
     Indication: HIV infection
     Dosage: UNK
     Route: 048
     Dates: start: 2003
  4. ATRIPLA [Suspect]
     Active Substance: EFAVIRENZ\EMTRICITABINE\TENOFOVIR DISOPROXIL FUMARATE
     Dosage: UNK
     Route: 048
     Dates: start: 2010, end: 2016
  5. DESCOVY [Concomitant]
     Active Substance: EMTRICITABINE\TENOFOVIR ALAFENAMIDE FUMARATE
  6. TIVICAY [Concomitant]
     Active Substance: DOLUTEGRAVIR SODIUM
  7. TRIZIVIR [Concomitant]
     Active Substance: ABACAVIR SULFATE\LAMIVUDINE\ZIDOVUDINE
  8. ATORVASTATIN [Concomitant]
     Active Substance: ATORVASTATIN
  9. CYANOCOBALAMIN [Concomitant]
     Active Substance: CYANOCOBALAMIN
  10. DESONIDE [Concomitant]
     Active Substance: DESONIDE
  11. ESTRADIOL [Concomitant]
     Active Substance: ESTRADIOL
  12. GABAPENTIN [Concomitant]
     Active Substance: GABAPENTIN
  13. LEVOTHYROXINE [Concomitant]
     Active Substance: LEVOTHYROXINE
  14. LISINOPRIL [Concomitant]
     Active Substance: LISINOPRIL
  15. MECLIZINE HYDROCHLORIDE [Concomitant]
     Active Substance: MECLIZINE HYDROCHLORIDE
  16. MELOXICAM [Concomitant]
     Active Substance: MELOXICAM
  17. PROGESTERONE [Concomitant]
     Active Substance: PROGESTERONE
  18. TYLENOL [Concomitant]
     Active Substance: ACETAMINOPHEN
  19. CHOLECALCIFEROL [Concomitant]
     Active Substance: CHOLECALCIFEROL

REACTIONS (11)
  - Osteoporosis [Unknown]
  - Pain [Not Recovered/Not Resolved]
  - Emotional distress [Not Recovered/Not Resolved]
  - Anxiety [Not Recovered/Not Resolved]
  - Anhedonia [Not Recovered/Not Resolved]
  - Osteopenia [Not Recovered/Not Resolved]
  - Bone density decreased [Not Recovered/Not Resolved]
  - Lumbar spinal stenosis [Unknown]
  - Gait disturbance [Not Recovered/Not Resolved]
  - Upper limb fracture [Unknown]
  - Wrist fracture [Unknown]

NARRATIVE: CASE EVENT DATE: 20120101
